FAERS Safety Report 8501612-6 (Version None)
Quarter: 2012Q3

REPORT INFORMATION
  Report Type: 
  Country: None (occurrence: None)
  Receive Date: 20120710
  Receipt Date: 20120704
  Transmission Date: 20120928
  Serious: Yes (Hospitalization)
  Sender: FDA-Public Use
  Company Number: MX-B.I. PHARMACEUTICALS,INC./RIDGEFIELD-2012-MX-00194MX

PATIENT
  Age: 63 Year
  Sex: Male

DRUGS (6)
  1. AMLODIPINO [Concomitant]
  2. CLOPIDOGREL [Concomitant]
  3. TRADJENTA [Suspect]
     Dosage: 5 MG
  4. TELMISARTAN [Concomitant]
  5. ASPIRIN [Concomitant]
  6. METFORMIN HCL [Concomitant]

REACTIONS (3)
  - FACIAL PAIN [None]
  - ISCHAEMIA [None]
  - RIGHT VENTRICULAR HYPERTROPHY [None]
